FAERS Safety Report 8495970 (Version 2)
Quarter: 2013Q3

REPORT INFORMATION
  Report Type: Report from Study
  Country: MW (occurrence: MW)
  Receive Date: 20120405
  Receipt Date: 20130829
  Transmission Date: 20140515
  Serious: Yes (Hospitalization, Other)
  Sender: FDA-Public Use
  Company Number: MW-ABBOTT-12P-100-0918804-00

PATIENT
  Age: 44 Year
  Sex: Male

DRUGS (2)
  1. ALUVIA TABLETS [Suspect]
     Indication: HIV INFECTION
     Route: 048
     Dates: start: 20110428
  2. COTRIMOXAZOLE [Concomitant]
     Indication: PRODUCT USED FOR UNKNOWN INDICATION
     Dates: start: 20080107

REACTIONS (6)
  - Plasmodium falciparum infection [Unknown]
  - Otitis media [Unknown]
  - Upper respiratory tract infection [Unknown]
  - Sepsis [Not Recovered/Not Resolved]
  - Malaria [Not Recovered/Not Resolved]
  - Pneumonia bacterial [Recovered/Resolved]
